FAERS Safety Report 8354887-0 (Version None)
Quarter: 2012Q2

REPORT INFORMATION
  Report Type: 
  Country: None (occurrence: None)
  Receive Date: 20120511
  Receipt Date: 20120508
  Transmission Date: 20120825
  Serious: Yes (Other)
  Sender: FDA-Public Use
  Company Number: DE-BAYER-2012-027427

PATIENT
  Age: 69 Year
  Sex: Female
  Weight: 79 kg

DRUGS (2)
  1. NEXAVAR [Suspect]
     Dosage: 200-800 MG
     Dates: end: 20120322
  2. NEXAVAR [Suspect]
     Indication: METASTATIC RENAL CELL CARCINOMA
     Dosage: 200-800 MG

REACTIONS (7)
  - PAIN [None]
  - DYSPHAGIA [None]
  - RHEUMATOID ARTHRITIS [None]
  - ARTHRALGIA [None]
  - RASH [None]
  - DRY MOUTH [None]
  - ERYTHEMA [None]
